FAERS Safety Report 9198563 (Version 1)
Quarter: 2013Q1

REPORT INFORMATION
  Report Type: Spontaneous
  Country: KR (occurrence: KR)
  Receive Date: 20130329
  Receipt Date: 20130329
  Transmission Date: 20140127
  Serious: Yes (Other)
  Sender: FDA-Public Use
  Company Number: KR-ELI_LILLY_AND_COMPANY-KR201303006699

PATIENT
  Age: 59 Year
  Sex: Female

DRUGS (2)
  1. HUMALOG 25% LISPRO, 75% NPL [Suspect]
     Indication: TYPE 2 DIABETES MELLITUS
     Dosage: 10 U, EACH MORNING
     Route: 058
     Dates: start: 20130125
  2. HUMALOG 25% LISPRO, 75% NPL [Suspect]
     Dosage: 6 U, EACH EVENING
     Route: 058
     Dates: start: 20130125

REACTIONS (1)
  - Pancreatic carcinoma metastatic [Not Recovered/Not Resolved]
